FAERS Safety Report 9418843 (Version 2)
Quarter: 2013Q4

REPORT INFORMATION
  Report Type: Spontaneous
  Country: DE (occurrence: DE)
  Receive Date: 20130725
  Receipt Date: 20131226
  Transmission Date: 20140711
  Serious: Yes (Other)
  Sender: FDA-Public Use
  Company Number: DE-JNJFOC-20130710550

PATIENT
  Age: 75 Year
  Sex: Male
  Weight: 99 kg

DRUGS (10)
  1. XARELTO [Suspect]
     Indication: CEREBROVASCULAR ACCIDENT PROPHYLAXIS
     Route: 048
     Dates: start: 20130426, end: 20130711
  2. XARELTO [Suspect]
     Indication: ATRIAL FIBRILLATION
     Route: 048
     Dates: start: 20130426, end: 20130711
  3. ESOMEPRAZOLE [Concomitant]
     Indication: GASTROOESOPHAGEAL REFLUX DISEASE
     Route: 065
  4. LERCANIDIPINE [Concomitant]
     Indication: BLOOD PRESSURE INCREASED
     Route: 065
  5. RASILEZ [Concomitant]
     Indication: BLOOD PRESSURE INCREASED
     Route: 065
  6. METOHEXAL [Concomitant]
     Indication: BLOOD PRESSURE INCREASED
     Route: 065
  7. SIMVASTATIN [Concomitant]
     Indication: HYPERCHOLESTEROLAEMIA
     Route: 065
  8. SIMVASTATIN [Concomitant]
     Indication: CORONARY ARTERY DISEASE
     Route: 065
  9. HEPARIN [Concomitant]
     Route: 065
  10. MARCUMAR [Concomitant]
     Route: 065
     Dates: start: 20131018

REACTIONS (1)
  - Glomerular filtration rate decreased [Unknown]
